FAERS Safety Report 23721647 (Version 2)
Quarter: 2024Q2

REPORT INFORMATION
  Report Type: Spontaneous
  Country: US (occurrence: US)
  Receive Date: 20240409
  Receipt Date: 20240426
  Transmission Date: 20240716
  Serious: No
  Sender: FDA-Public Use
  Company Number: US-BIOVITRUM-2024-US-004729

PATIENT
  Age: 44 Year
  Sex: Female

DRUGS (2)
  1. VONJO [Suspect]
     Active Substance: PACRITINIB
     Indication: Platelet count abnormal
     Dosage: 200 MG, BID
     Route: 048
     Dates: start: 20220629, end: 20221130
  2. VONJO [Suspect]
     Active Substance: PACRITINIB
     Indication: Myelofibrosis

REACTIONS (11)
  - Bone pain [Not Recovered/Not Resolved]
  - Fatigue [Unknown]
  - Impaired work ability [Unknown]
  - Nausea [Unknown]
  - Vomiting [Unknown]
  - Diarrhoea [Unknown]
  - Laboratory test abnormal [Unknown]
  - Quality of life decreased [Unknown]
  - Night sweats [Not Recovered/Not Resolved]
  - Pruritus [Not Recovered/Not Resolved]
  - Platelet count increased [Unknown]
